FAERS Safety Report 5332843-4 (Version None)
Quarter: 2007Q2

REPORT INFORMATION
  Report Type: 
  Country: None (occurrence: None)
  Receive Date: 20070521
  Receipt Date: 20070509
  Transmission Date: 20071010
  Serious: Yes (Life-Threatening, Hospitalization)
  Sender: FDA-Public Use
  Company Number: 07-001008

PATIENT
  Age: 47 Year
  Sex: Male

DRUGS (3)
  1. DOVONEX [Suspect]
     Indication: PSORIASIS
     Dosage: 30 G/WEEK, TOPICAL
     Route: 061
     Dates: start: 20070101, end: 20070417
  2. CYCLOSPORINE [Suspect]
     Indication: PSORIASIS
     Dosage: 100-200 MG, QD, ORAL
     Route: 048
  3. MAGNESIUM (MAGNESIUM) [Concomitant]

REACTIONS (4)
  - DRUG ABUSER [None]
  - HYPERCALCAEMIA [None]
  - INCORRECT DOSE ADMINISTERED [None]
  - RENAL FAILURE [None]
